FAERS Safety Report 6315704-3 (Version None)
Quarter: 2009Q3

REPORT INFORMATION
  Report Type: 
  Country: None (occurrence: None)
  Receive Date: 20090818
  Receipt Date: 20090724
  Transmission Date: 20100115
  Serious: Yes (Death)
  Sender: FDA-Public Use
  Company Number: AUR-APL-2009-00357

PATIENT
  Age: 76 Year
  Sex: Female
  Weight: 91 kg

DRUGS (10)
  1. METFORMIN HCL [Suspect]
  2. HYDROCHLOROTHIAZIDE [Suspect]
  3. ARIMIDEX [Suspect]
     Indication: BREAST CANCER
     Dosage: 1MG-DAILY-ORAL
     Route: 048
     Dates: start: 20060118
  4. NORVASC [Suspect]
  5. GLYBURIDE [Suspect]
  6. ASPIRIN [Suspect]
  7. CALCIUM WITH VITAMIN D [Suspect]
  8. COZAAR [Suspect]
  9. SYNTHROID [Suspect]
  10. BONIVA [Suspect]

REACTIONS (2)
  - CARDIAC ARREST [None]
  - MYOCARDIAL INFARCTION [None]
